FAERS Safety Report 9885945 (Version 3)
Quarter: 2014Q1

REPORT INFORMATION
  Report Type: Report from Study
  Country: CA (occurrence: CA)
  Receive Date: 20140210
  Receipt Date: 20140219
  Transmission Date: 20141002
  Serious: Yes (Hospitalization)
  Sender: FDA-Public Use
  Company Number: CA-ASTRAZENECA-2013SE77474

PATIENT
  Age: 26336 Day
  Sex: Male

DRUGS (12)
  1. TICAGRELOR [Suspect]
     Indication: CORONARY ARTERY DISEASE
     Route: 048
     Dates: start: 20120829, end: 20131006
  2. TICAGRELOR [Suspect]
     Indication: CORONARY ARTERY DISEASE
     Route: 048
     Dates: start: 20131011, end: 20131016
  3. CRESTOR [Concomitant]
     Indication: DYSLIPIDAEMIA
     Route: 048
  4. TYLENOL MUSCLE PAIN [Concomitant]
     Indication: INFLUENZA
     Dosage: AS NEEDED
     Route: 048
     Dates: start: 20121230
  5. FLOMAX CR [Concomitant]
     Indication: BENIGN PROSTATIC HYPERPLASIA
     Route: 048
  6. VIT B12 [Concomitant]
     Indication: PERNICIOUS ANAEMIA
     Route: 048
  7. FINASTERIDE [Concomitant]
     Indication: BENIGN PROSTATIC HYPERPLASIA
     Route: 048
     Dates: start: 20121212
  8. AMLODIPINE [Concomitant]
     Indication: HYPERTENSION
     Route: 048
  9. TYLENOL COLD [Concomitant]
     Indication: INFLUENZA
     Route: 048
     Dates: start: 20121228
  10. PERINDOPRIL [Concomitant]
     Indication: HYPERTENSION
     Route: 048
  11. NITROLINGUAL [Concomitant]
     Indication: ANGINA PECTORIS
     Route: 060
  12. ASA [Concomitant]
     Route: 048

REACTIONS (1)
  - Gastric ulcer haemorrhage [Recovered/Resolved]
